FAERS Safety Report 4355220-1 (Version None)
Quarter: 2004Q2

REPORT INFORMATION
  Report Type: 
  Country: None (occurrence: None)
  Receive Date: 20040504
  Receipt Date: 20040421
  Transmission Date: 20050107
  Serious: Yes (Disabling)
  Sender: FDA-Public Use
  Company Number: 204728

PATIENT
  Age: 78 Year
  Sex: Male

DRUGS (8)
  1. RITUXAN [Suspect]
     Indication: DIFFUSE LARGE B-CELL LYMPHOMA
     Dosage: 500 MG, INTRAVENOUS
     Route: 042
     Dates: start: 20040129
  2. CYCLOPHOSPHAMIDE [Suspect]
     Indication: DIFFUSE LARGE B-CELL LYMPHOMA
     Dosage: 900 MG, INTRAVENOUS
     Route: 042
     Dates: start: 20040130, end: 20040203
  3. DOXORUBICIN HYDROCHLORIDE [Suspect]
     Indication: DIFFUSE LARGE B-CELL LYMPHOMA
     Dosage: 60 MG, INTRAVENOUS
     Route: 042
     Dates: start: 20040103, end: 20040203
  4. VINCRISTINE [Suspect]
     Indication: DIFFUSE LARGE B-CELL LYMPHOMA
     Dosage: 1.6 MG, INTRAVENOUS
     Route: 042
     Dates: start: 20040130, end: 20040203
  5. PREDNISONE [Suspect]
     Indication: DIFFUSE LARGE B-CELL LYMPHOMA
     Dosage: 60 MG, ORAL
     Route: 048
     Dates: start: 20040130, end: 20040203
  6. GRANISETRON (GRANISETRON HYDROCHLORIDE) [Concomitant]
  7. TROPISETRON (TROPISETRON HYDROCHLORIDE) [Concomitant]
  8. CEFDITOREN PIVOXIL (CEFDITOREN) [Concomitant]

REACTIONS (1)
  - PLEURISY [None]
